FAERS Safety Report 6867920-X (Version None)
Quarter: 2010Q3

REPORT INFORMATION
  Report Type: 
  Country: None (occurrence: None)
  Receive Date: 20100722
  Receipt Date: 20080430
  Transmission Date: 20110219
  Serious: No
  Sender: FDA-Public Use
  Company Number: US-PFIZER INC-2008039187

PATIENT
  Sex: Male
  Weight: 84.545 kg

DRUGS (2)
  1. CHANTIX [Suspect]
     Indication: SMOKING CESSATION THERAPY
     Dates: start: 20080401
  2. ANTIMIGRAINE PREPARATIONS [Concomitant]
     Indication: MIGRAINE

REACTIONS (2)
  - ABNORMAL DREAMS [None]
  - HEADACHE [None]
